FAERS Safety Report 4921579-7 (Version None)
Quarter: 2006Q1

REPORT INFORMATION
  Report Type: 
  Country: None (occurrence: None)
  Receive Date: 20060224
  Receipt Date: 20060213
  Transmission Date: 20060701
  Serious: Yes (Other)
  Sender: FDA-Public Use
  Company Number: 2006AC00281

PATIENT
  Age: 27 Year
  Sex: Female
  Weight: 75 kg

DRUGS (2)
  1. ROPIVACAINE [Suspect]
     Indication: ANAESTHESIA
     Route: 037
  2. LACTATED RINGER'S [Concomitant]
     Dosage: 1000-1300 ML

REACTIONS (1)
  - HORNER'S SYNDROME [None]
